FAERS Safety Report 16897650 (Version 11)
Quarter: 2024Q3

REPORT INFORMATION
  Report Type: Report from Study
  Country: JP (occurrence: JP)
  Receive Date: 20191009
  Receipt Date: 20240917
  Transmission Date: 20241016
  Serious: Yes (Hospitalization, Other)
  Sender: BRISTOL MYERS SQUIBB
  Company Number: JP-BRISTOL-MYERS SQUIBB COMPANY-BMS-2019-096760

PATIENT
  Age: 66 Year
  Sex: Male
  Weight: 66.6 kg

DRUGS (3)
  1. YERVOY [Suspect]
     Active Substance: IPILIMUMAB
     Indication: Malignant melanoma
     Route: 041
     Dates: start: 20190220, end: 20190403
  2. OPDIVO [Suspect]
     Active Substance: NIVOLUMAB
     Indication: Malignant melanoma
     Route: 041
     Dates: start: 20190220, end: 20190403
  3. OPDIVO [Suspect]
     Active Substance: NIVOLUMAB
     Route: 041
     Dates: start: 201901, end: 20190204

REACTIONS (17)
  - Immune-mediated enterocolitis [Recovering/Resolving]
  - Immune-mediated hypophysitis [Recovering/Resolving]
  - Hypopituitarism [Unknown]
  - Hypothyroidism [Not Recovered/Not Resolved]
  - Prescribed overdose [Unknown]
  - Diarrhoea [Recovered/Resolved]
  - Secondary adrenocortical insufficiency [Unknown]
  - Growth hormone deficiency [Unknown]
  - Adrenocorticotropic hormone deficiency [Unknown]
  - Thyroid stimulating hormone deficiency [Unknown]
  - Blood prolactin decreased [Unknown]
  - Pituitary enlargement [Unknown]
  - Headache [Unknown]
  - Fatigue [Unknown]
  - Nausea [Unknown]
  - Hypotension [Unknown]
  - Gonadotrophin deficiency [Unknown]

NARRATIVE: CASE EVENT DATE: 20190301
